FAERS Safety Report 14607512 (Version 1)
Quarter: 2018Q1

REPORT INFORMATION
  Report Type: Report from Study
  Country: US (occurrence: US)
  Receive Date: 20180307
  Receipt Date: 20180307
  Transmission Date: 20180509
  Serious: Yes (Hospitalization)
  Sender: FDA-Public Use
  Company Number: US-TEVA-2018-US-867095

PATIENT
  Sex: Female

DRUGS (1)
  1. COPAXONE [Suspect]
     Active Substance: GLATIRAMER ACETATE
     Indication: MULTIPLE SCLEROSIS
     Route: 058
     Dates: start: 20180212

REACTIONS (14)
  - Chills [Unknown]
  - Oral mucosal blistering [Recovering/Resolving]
  - Splenomegaly [Unknown]
  - Stomach mass [Unknown]
  - Haemoglobin decreased [Unknown]
  - Immediate post-injection reaction [Unknown]
  - Hypotension [Unknown]
  - Lip blister [Recovering/Resolving]
  - Hyperhidrosis [Unknown]
  - Vaginal mucosal blistering [Recovering/Resolving]
  - Platelet count decreased [Unknown]
  - Pyrexia [Unknown]
  - White blood cell count decreased [Unknown]
  - Hepatomegaly [Unknown]
